FAERS Safety Report 15749556 (Version 2)
Quarter: 2019Q1

REPORT INFORMATION
  Report Type: Report from Study
  Country: NL (occurrence: NL)
  Receive Date: 20181221
  Receipt Date: 20190228
  Transmission Date: 20190417
  Serious: Yes (Other)
  Sender: FDA-Public Use
  Company Number: NL-AMGEN-NLDSL2018180718

PATIENT
  Age: 21 Year
  Sex: Female

DRUGS (2)
  1. NEUPOGEN [Suspect]
     Active Substance: FILGRASTIM
     Dosage: 30 MILLION UNIT, UNK (EVENING) FOR 5 DAYS
     Route: 058
     Dates: start: 20181213, end: 20181217
  2. NEUPOGEN [Suspect]
     Active Substance: FILGRASTIM
     Indication: STEM CELL TRANSPLANT
     Dosage: 48 MILLION UNIT, UNK (MORNING) FOR 5 DAYS
     Route: 058
     Dates: start: 20181213, end: 20181217

REACTIONS (8)
  - Pallor [Recovered/Resolved]
  - Granulocytosis [Recovered/Resolved]
  - Dizziness [Recovered/Resolved]
  - Stress [Recovered/Resolved]
  - Hypersensitivity [Recovered/Resolved]
  - Nausea [Recovered/Resolved]
  - Fatigue [Recovered/Resolved]
  - Blood pressure increased [Unknown]

NARRATIVE: CASE EVENT DATE: 20181213
